FAERS Safety Report 19802509 (Version 1)
Quarter: 2021Q3

REPORT INFORMATION
  Report Type: Spontaneous
  Country: US (occurrence: US)
  Receive Date: 20210908
  Receipt Date: 20210908
  Transmission Date: 20211014
  Serious: Yes (Death)
  Sender: FDA-Public Use
  Company Number: None

PATIENT
  Age: 92 Year
  Sex: Female
  Weight: 55.8 kg

DRUGS (6)
  1. PROLIA [Suspect]
     Active Substance: DENOSUMAB
     Indication: OSTEOPOROSIS
     Dosage: ?          OTHER FREQUENCY:EVERY 6 MONTHS;?
     Dates: start: 20190701, end: 20210610
  2. ATORVASTATIN [Concomitant]
     Active Substance: ATORVASTATIN
  3. PRESERVISION [Concomitant]
     Active Substance: MINERALS\VITAMINS
  4. VITAMINS  B?12 + D [Concomitant]
  5. TYLENOL [Concomitant]
     Active Substance: ACETAMINOPHEN
  6. BABY ASPIRIN [Concomitant]
     Active Substance: ASPIRIN

REACTIONS (8)
  - Lymphoma [None]
  - Immune system disorder [None]
  - Platelet count decreased [None]
  - Contusion [None]
  - Eye contusion [None]
  - Infection [None]
  - Tongue discolouration [None]
  - Red blood cell count decreased [None]

NARRATIVE: CASE EVENT DATE: 20210510
